FAERS Safety Report 23741481 (Version 4)
Quarter: 2024Q3

REPORT INFORMATION
  Report Type: Spontaneous
  Country: AR (occurrence: AR)
  Receive Date: 20240415
  Receipt Date: 20240828
  Transmission Date: 20241017
  Serious: Yes (Hospitalization, Other)
  Sender: GLAXOSMITHKLINE
  Company Number: AR-GLAXOSMITHKLINE-AR2024AMR045792

PATIENT

DRUGS (1)
  1. ZEJULA [Suspect]
     Active Substance: NIRAPARIB
     Indication: Product used for unknown indication
     Dosage: UNK
     Dates: end: 20240416

REACTIONS (4)
  - Surgery [Recovered/Resolved]
  - Gastrointestinal carcinoma [Recovered/Resolved]
  - Neoplasm [Unknown]
  - Drug ineffective [Unknown]
